FAERS Safety Report 14994784 (Version 1)
Quarter: 2018Q2

REPORT INFORMATION
  Report Type: Spontaneous
  Country: US (occurrence: US)
  Receive Date: 20180611
  Receipt Date: 20180611
  Transmission Date: 20180711
  Serious: No
  Sender: FDA-Public Use
  Company Number: US-PFIZER INC-2018233039

PATIENT
  Age: 64 Year
  Sex: Male
  Weight: 71.2 kg

DRUGS (2)
  1. METOPROLOL. [Concomitant]
     Active Substance: METOPROLOL
     Dosage: UNK, 2X/DAY (1/2 TABLET TWICE A DAY)
  2. LYRICA [Suspect]
     Active Substance: PREGABALIN
     Indication: COMPLEX REGIONAL PAIN SYNDROME
     Dosage: 100 MG, 2X/DAY
     Route: 048

REACTIONS (2)
  - Product use in unapproved indication [Not Recovered/Not Resolved]
  - Face oedema [Unknown]
